FAERS Safety Report 6850857-X (Version None)
Quarter: 2010Q3

REPORT INFORMATION
  Report Type: 
  Country: None (occurrence: None)
  Receive Date: 20100716
  Receipt Date: 20100713
  Transmission Date: 20110219
  Serious: Yes (Hospitalization, Other)
  Sender: FDA-Public Use
  Company Number: US-AMGEN-QUU419620

PATIENT
  Sex: Male
  Weight: 88.6 kg

DRUGS (15)
  1. EPOGEN [Suspect]
     Indication: RENAL FAILURE CHRONIC
     Route: 058
     Dates: start: 20090911, end: 20100623
  2. PHOSPHATE-SANDOZ [Concomitant]
  3. MULTI-VITAMINS [Concomitant]
  4. NEPHRO-CAPS [Concomitant]
     Dates: start: 20100526, end: 20100618
  5. PRILOSEC [Concomitant]
     Route: 048
     Dates: start: 20100217, end: 20100618
  6. PROZAC [Concomitant]
     Route: 048
     Dates: start: 20100408, end: 20100618
  7. ZEMPLAR [Concomitant]
     Dates: start: 20100528
  8. HUMULIN 70/30 [Concomitant]
     Dates: start: 20100209
  9. LEVEMIR [Concomitant]
     Dates: start: 20100526
  10. UNSPECIFIED MEDICATION [Concomitant]
     Route: 048
     Dates: start: 20100526, end: 20100618
  11. XANAX [Concomitant]
  12. REGLAN [Concomitant]
     Route: 048
  13. LOPRESSOR [Concomitant]
  14. TOPROL-XL [Concomitant]
  15. NITRO-DUR [Concomitant]
     Route: 062

REACTIONS (23)
  - ABDOMINAL PAIN [None]
  - ANAEMIA [None]
  - ASCITES [None]
  - AUTONOMIC NEUROPATHY [None]
  - BONE DISORDER [None]
  - BONE MARROW FAILURE [None]
  - CARDIAC DISORDER [None]
  - DIVERTICULUM [None]
  - DRUG INEFFECTIVE [None]
  - GASTRIC ULCER [None]
  - GASTRITIS [None]
  - HELICOBACTER INFECTION [None]
  - HIATUS HERNIA [None]
  - HYPERTENSION [None]
  - HYPOKALAEMIA [None]
  - HYPOVOLAEMIA [None]
  - INTESTINAL POLYP [None]
  - LYMPHOMA [None]
  - NAUSEA [None]
  - OESOPHAGITIS [None]
  - ORTHOSTATIC HYPOTENSION [None]
  - VASCULAR CALCIFICATION [None]
  - VOMITING [None]
